FAERS Safety Report 4885051-5 (Version None)
Quarter: 2006Q1

REPORT INFORMATION
  Report Type: 
  Country: None (occurrence: None)
  Receive Date: 20060119
  Receipt Date: 20060111
  Transmission Date: 20060701
  Serious: Yes (Hospitalization)
  Sender: FDA-Public Use
  Company Number: US-MERCK-0601USA01554

PATIENT

DRUGS (8)
  1. VYTORIN [Suspect]
     Indication: BLOOD CHOLESTEROL INCREASED
     Route: 048
  2. FENTANYL [Concomitant]
     Route: 065
  3. VERSED [Concomitant]
     Route: 065
  4. [THERAPY UNSPECIFIED] [Concomitant]
     Route: 065
  5. ZOFRAN [Concomitant]
     Route: 065
  6. MIVACRON [Concomitant]
     Route: 065
  7. ANECTINE [Concomitant]
     Route: 065
  8. SUCCINYLCHOLINE CHLORIDE [Concomitant]
     Route: 065

REACTIONS (3)
  - ADVERSE EVENT [None]
  - ASTHENIA [None]
  - BLOOD CREATINE PHOSPHOKINASE INCREASED [None]
